FAERS Safety Report 9619298 (Version 1)
Quarter: 2013Q4

REPORT INFORMATION
  Report Type: Spontaneous
  Country: US (occurrence: US)
  Receive Date: 20131014
  Receipt Date: 20131014
  Transmission Date: 20140711
  Serious: Yes (Death, Hospitalization)
  Sender: FDA-Public Use
  Company Number: US-NOVOPROD-389512

PATIENT
  Age: 53 Year
  Sex: Male

DRUGS (1)
  1. NOVOSEVEN RT [Suspect]
     Indication: HAEMOPHILIA B WITH ANTI FACTOR IX
     Route: 042

REACTIONS (2)
  - Death [Fatal]
  - Disseminated intravascular coagulation [Unknown]
